FAERS Safety Report 19468040 (Version 2)
Quarter: 2022Q1

REPORT INFORMATION
  Report Type: Spontaneous
  Country: US (occurrence: US)
  Receive Date: 20210628
  Receipt Date: 20220105
  Transmission Date: 20220423
  Serious: Yes (Death, Hospitalization, Other)
  Sender: FDA-Public Use
  Company Number: US-PFIZER INC-001-0073-970412

PATIENT
  Age: 29 Year
  Sex: Male
  Weight: 75.3 kg

DRUGS (16)
  1. PHENYTOIN SODIUM [Interacting]
     Active Substance: PHENYTOIN SODIUM
     Indication: Seizure
     Dosage: 300 MG, DAILY (HS)
     Route: 048
  2. PHENYTOIN SODIUM [Interacting]
     Active Substance: PHENYTOIN SODIUM
     Dosage: 200 MG (ONE DOSE)
     Route: 048
  3. PHENYTOIN SODIUM [Interacting]
     Active Substance: PHENYTOIN SODIUM
     Dosage: 400 MG, DAILY (QHS, MAINTENANCE DOSAGE)
     Route: 048
  4. PHENYTOIN SODIUM [Interacting]
     Active Substance: PHENYTOIN SODIUM
     Dosage: 500 MG, DAILY (QHS, INCREASED)
     Route: 048
  5. PHENYTOIN SODIUM [Interacting]
     Active Substance: PHENYTOIN SODIUM
     Dosage: 550 MG, DAILY (200 MG QAM AND 350 MG QHS)
     Route: 048
  6. PHENYTOIN [Interacting]
     Active Substance: PHENYTOIN
     Indication: Seizure
     Dosage: 1 G (LOADING DOSE)
     Route: 042
  7. CISPLATIN [Interacting]
     Active Substance: CISPLATIN
     Indication: Malignant melanoma
     Dosage: 25 MG/M2, CYCLIC
  8. CISPLATIN [Interacting]
     Active Substance: CISPLATIN
     Dosage: SECOND CYCLE
  9. CARMUSTINE [Interacting]
     Active Substance: CARMUSTINE
     Indication: Malignant melanoma
     Dosage: 150 MG/M2, CYCLIC
  10. DACARBAZINE [Interacting]
     Active Substance: DACARBAZINE
     Indication: Malignant melanoma
     Dosage: 220 MG/M2, CYCLIC
  11. DACARBAZINE [Interacting]
     Active Substance: DACARBAZINE
     Dosage: SECOND CYCLE
  12. DEXAMETHASONE [Interacting]
     Active Substance: DEXAMETHASONE
     Indication: Malignant melanoma
     Dosage: 4 MG, 4X/DAY (Q6H)
     Route: 048
  13. DEXAMETHASONE [Interacting]
     Active Substance: DEXAMETHASONE
     Dosage: 4 MG, 2X/DAY (Q12H)
     Route: 048
  14. TAMOXIFEN CITRATE [Interacting]
     Active Substance: TAMOXIFEN CITRATE
     Indication: Malignant melanoma
     Dosage: 20 MG, 2X/DAY (BID)
     Route: 048
  15. TAMOXIFEN CITRATE [Interacting]
     Active Substance: TAMOXIFEN CITRATE
     Dosage: SECOND CYCLE
     Route: 048
  16. PHENOBARBITAL [Concomitant]
     Active Substance: PHENOBARBITAL
     Dosage: 200 MG, DAILY (HS)
     Route: 048

REACTIONS (3)
  - Drug interaction [Fatal]
  - Anticonvulsant drug level below therapeutic [Fatal]
  - Drug ineffective [Fatal]
